FAERS Safety Report 11247046 (Version 1)
Quarter: 2015Q3

REPORT INFORMATION
  Report Type: Spontaneous
  Country: US (occurrence: None)
  Receive Date: 20150706
  Receipt Date: 20150706
  Transmission Date: 20151125
  Serious: Yes (Other)
  Sender: FDA-Public Use
  Company Number: None

PATIENT
  Age: 33 Year
  Sex: Female
  Weight: 101.61 kg

DRUGS (8)
  1. JANUMET [Suspect]
     Active Substance: METFORMIN HYDROCHLORIDE\SITAGLIPTIN PHOSPHATE
     Indication: TYPE 2 DIABETES MELLITUS
     Route: 048
     Dates: start: 20150701, end: 20150701
  2. CALCIUM PLUS [Concomitant]
  3. CONTOUR BLOOD GLUCOSE MONITORING SYSTEM [Concomitant]
  4. VITAMIN D SUPPLEMENTS (BAYER) [Concomitant]
  5. VITAMIN D SUPPLEMENTS [Concomitant]
  6. LEVOTHYROXINE. [Concomitant]
     Active Substance: LEVOTHYROXINE
  7. LISINOPRIL. [Concomitant]
     Active Substance: LISINOPRIL
  8. CALCIUM PLUS [Concomitant]

REACTIONS (6)
  - Eye pain [None]
  - Hypersensitivity [None]
  - Ocular hyperaemia [None]
  - Ocular discomfort [None]
  - Blood glucose increased [None]
  - Musculoskeletal chest pain [None]

NARRATIVE: CASE EVENT DATE: 20150701
